FAERS Safety Report 9399321 (Version 3)
Quarter: 2013Q3

REPORT INFORMATION
  Report Type: Spontaneous
  Country: IT (occurrence: None)
  Receive Date: 20130710
  Receipt Date: 20130903
  Transmission Date: 20140515
  Serious: Yes (Hospitalization, Other)
  Sender: FDA-Public Use
  Company Number: 2013AP006375

PATIENT
  Age: 83 Year
  Sex: Female

DRUGS (7)
  1. LEVOFLOXACIN [Suspect]
     Indication: COUGH
     Route: 048
     Dates: start: 20130415, end: 20130419
  2. LASILIX [Suspect]
     Route: 048
     Dates: start: 20120421, end: 20130420
  3. CEFIXORAL [Suspect]
     Route: 048
     Dates: start: 20130415, end: 20130419
  4. RATACAND [Suspect]
     Route: 048
     Dates: start: 20120421, end: 20130420
  5. CANRENONE (CANRENONE) [Concomitant]
  6. LANSOPRAZOLE (LANSOPRAZOLE) [Concomitant]
  7. ACETYLSALICYLIC ACID (ACETYSALICYLIC ACID) [Concomitant]

REACTIONS (5)
  - Asthenia [None]
  - Nausea [None]
  - Renal failure acute [None]
  - Vomiting [None]
  - Blood pressure decreased [None]
